FAERS Safety Report 16270072 (Version 4)
Quarter: 2019Q2

REPORT INFORMATION
  Report Type: Report from Study
  Country: US (occurrence: US)
  Receive Date: 20190503
  Receipt Date: 20190605
  Transmission Date: 20190711
  Serious: Yes (Hospitalization, Other)
  Sender: FDA-Public Use
  Company Number: US-MALLINCKRODT-T201902515

PATIENT
  Age: 51 Year
  Sex: Female

DRUGS (7)
  1. REPOSITORY CORTICOTROPIN INJECTION [Suspect]
     Active Substance: CORTICOTROPIN
     Indication: NEPHROTIC SYNDROME
     Dosage: 80 UNITS/1ML, EVERY 3 DAYS/EVERY 72 HOURS
     Route: 030
     Dates: start: 201903, end: 201903
  2. REPOSITORY CORTICOTROPIN INJECTION [Suspect]
     Active Substance: CORTICOTROPIN
     Dosage: 32 UNITS, UNK
     Route: 030
     Dates: start: 2019, end: 2019
  3. REPOSITORY CORTICOTROPIN INJECTION [Suspect]
     Active Substance: CORTICOTROPIN
     Indication: PROTEINURIA
     Dosage: 40 UNITS, TWO TIMES PER WEEKS (WEDNESDAY/SATURDAY) FOR 2 WEEKS
     Route: 030
     Dates: start: 20190306, end: 201903
  4. REPOSITORY CORTICOTROPIN INJECTION [Suspect]
     Active Substance: CORTICOTROPIN
     Dosage: 80 UNITS/1ML, 2 TIMES PER WEEK (MONDAY/THURSDAY)
     Route: 030
     Dates: start: 20190425, end: 2019
  5. FAMOTIDINE. [Concomitant]
     Active Substance: FAMOTIDINE
     Indication: PRODUCT USED FOR UNKNOWN INDICATION
     Dosage: 20 MG, 2 EVERYDAY
     Route: 065
  6. REPOSITORY CORTICOTROPIN INJECTION [Suspect]
     Active Substance: CORTICOTROPIN
     Dosage: 80 UNITS/1ML, 2 TIMES PER WEEK (MONDAY/THURSDAY)
     Route: 030
     Dates: start: 201903, end: 20190404
  7. REPOSITORY CORTICOTROPIN INJECTION [Suspect]
     Active Substance: CORTICOTROPIN
     Dosage: BETWEEN 0.4 AND 0.45 ML, 2 TIMES PER WEEK (MONDAY/THURSDAY)
     Route: 030
     Dates: start: 2019, end: 20190502

REACTIONS (26)
  - Injection site bruising [Not Recovered/Not Resolved]
  - Incorrect dose administered [Unknown]
  - Dehydration [Unknown]
  - Transfusion [Unknown]
  - Diarrhoea [Recovering/Resolving]
  - Fatigue [Not Recovered/Not Resolved]
  - Ageusia [Unknown]
  - Asthenia [Unknown]
  - Frustration tolerance decreased [Unknown]
  - Heart rate increased [Not Recovered/Not Resolved]
  - Dyspnoea [Not Recovered/Not Resolved]
  - Infusion site swelling [Unknown]
  - Muscle spasms [Not Recovered/Not Resolved]
  - Decreased appetite [Not Recovered/Not Resolved]
  - Thirst [Not Recovered/Not Resolved]
  - Musculoskeletal pain [Unknown]
  - Irritability [Unknown]
  - Intentional underdose [Not Recovered/Not Resolved]
  - Abdominal pain upper [Recovering/Resolving]
  - Hyperhidrosis [Unknown]
  - Blood count abnormal [Unknown]
  - Weight decreased [Not Recovered/Not Resolved]
  - Inappropriate schedule of product administration [Not Recovered/Not Resolved]
  - Gait disturbance [Unknown]
  - Nausea [Not Recovered/Not Resolved]
  - Fear of injection [Not Recovered/Not Resolved]

NARRATIVE: CASE EVENT DATE: 2019
